FAERS Safety Report 14044447 (Version 1)
Quarter: 2017Q4

REPORT INFORMATION
  Report Type: Spontaneous
  Country: ZA (occurrence: ZA)
  Receive Date: 20171004
  Receipt Date: 20171004
  Transmission Date: 20180321
  Serious: Yes (Hospitalization, Other)
  Sender: FDA-Public Use
  Company Number: ZA-MYLANLABS-2017M1062721

PATIENT
  Age: 56 Year
  Sex: Male

DRUGS (2)
  1. CLOZAPINE. [Suspect]
     Active Substance: CLOZAPINE
     Indication: SCHIZOPHRENIA
     Dosage: UNK UNK, QD
     Dates: start: 1989
  2. ENALAPRIL [Concomitant]
     Active Substance: ENALAPRIL
     Indication: HYPERTENSION
     Dosage: 5 MG, QD

REACTIONS (8)
  - Weight decreased [Unknown]
  - Intestinal obstruction [Unknown]
  - Diarrhoea [Unknown]
  - Seizure [Unknown]
  - Delusion [Unknown]
  - Morbid thoughts [Unknown]
  - Hiccups [Unknown]
  - Constipation [Unknown]
